FAERS Safety Report 22328179 (Version 1)
Quarter: 2023Q2

REPORT INFORMATION
  Report Type: Spontaneous
  Country: US (occurrence: US)
  Receive Date: 20230516
  Receipt Date: 20230516
  Transmission Date: 20230722
  Serious: Yes (Other)
  Sender: FDA-Public Use
  Company Number: US-009507513-2305USA003196

PATIENT
  Age: 32 Year
  Sex: Female

DRUGS (1)
  1. KEYTRUDA [Suspect]
     Active Substance: PEMBROLIZUMAB
     Indication: Hormone receptor positive HER2 negative breast cancer

REACTIONS (2)
  - Immune-mediated hypophysitis [Recovered/Resolved]
  - Secondary adrenocortical insufficiency [Recovered/Resolved]
